FAERS Safety Report 4340876-X (Version None)
Quarter: 2004Q2

REPORT INFORMATION
  Report Type: 
  Country: None (occurrence: None)
  Receive Date: 20040414
  Receipt Date: 20040406
  Transmission Date: 20050107
  Serious: Yes (Life-Threatening, Hospitalization)
  Sender: FDA-Public Use
  Company Number: TPG2003A00348

PATIENT
  Age: 86 Year
  Sex: Male

DRUGS (7)
  1. ACTOS [Suspect]
     Indication: DIABETES MELLITUS NON-INSULIN-DEPENDENT
     Dosage: 30 MG (30 MG, 1 IN 1 D) PER ORAL
     Route: 048
     Dates: start: 20030501, end: 20030701
  2. DIABETASE (METFORMIN HYDROCHLORIDE) [Concomitant]
  3. VERAHEXAL (VERAPAMIL HYDROCHLORIDE) [Concomitant]
  4. ENAHEXAL COMP. (ENALAPRIL MALEATE) [Concomitant]
  5. ASPIRIN [Concomitant]
  6. ALLOPURINOL [Concomitant]
  7. CRANOC    (FLUVASTATIN SODIUM) [Concomitant]

REACTIONS (3)
  - DRUG TOXICITY [None]
  - HEPATOCELLULAR DAMAGE [None]
  - HEPATORENAL SYNDROME [None]
